FAERS Safety Report 9702262 (Version 1)
Quarter: 2013Q4

REPORT INFORMATION
  Report Type: Spontaneous
  Country: US (occurrence: US)
  Receive Date: 20131121
  Receipt Date: 20131121
  Transmission Date: 20140711
  Serious: No
  Sender: FDA-Public Use
  Company Number: US-BAYER-2013-139357

PATIENT
  Sex: Female

DRUGS (1)
  1. CLIMARA PRO [Suspect]
     Dosage: UNK

REACTIONS (6)
  - Application site pruritus [None]
  - Blister [None]
  - Inappropriate schedule of drug administration [None]
  - Product physical issue [None]
  - Product adhesion issue [None]
  - Application site pruritus [None]
